FAERS Safety Report 16424442 (Version 1)
Quarter: 2019Q2

REPORT INFORMATION
  Report Type: Spontaneous
  Country: US (occurrence: US)
  Receive Date: 20190613
  Receipt Date: 20190613
  Transmission Date: 20190711
  Serious: No
  Sender: FDA-Public Use
  Company Number: US-TEVA-2019-US-1055615

PATIENT

DRUGS (1)
  1. CINQAIR [Suspect]
     Active Substance: RESLIZUMAB
     Indication: ASTHMA
     Route: 042
     Dates: start: 20180822, end: 20190416

REACTIONS (3)
  - Headache [Unknown]
  - Therapeutic response shortened [Unknown]
  - Drug ineffective [Unknown]
